FAERS Safety Report 7170462-8 (Version None)
Quarter: 2010Q4

REPORT INFORMATION
  Report Type: 
  Country: None (occurrence: None)
  Receive Date: 20101217
  Receipt Date: 20101203
  Transmission Date: 20110411
  Serious: Yes (Hospitalization)
  Sender: FDA-Public Use
  Company Number: DE-SANOFI-AVENTIS-2010SA073559

PATIENT
  Sex: Male

DRUGS (7)
  1. DRONEDARONE [Suspect]
     Indication: ATRIAL FIBRILLATION
     Route: 048
  2. DELIX PLUS [Concomitant]
     Dosage: 5/25 MG/DAY
  3. METOPROLOL [Concomitant]
  4. ALLOPURINOL [Concomitant]
  5. CARMEN [Concomitant]
  6. MARCUMAR [Concomitant]
  7. EMBOLEX [Concomitant]
     Dosage: DOSE:1 UNIT(S)
     Route: 065

REACTIONS (5)
  - DIZZINESS [None]
  - HYPERHIDROSIS [None]
  - NAUSEA [None]
  - OEDEMA PERIPHERAL [None]
  - PRESYNCOPE [None]
